FAERS Safety Report 5720502-5 (Version None)
Quarter: 2008Q2

REPORT INFORMATION
  Report Type: 
  Country: None (occurrence: None)
  Receive Date: 20080423
  Receipt Date: 20080122
  Transmission Date: 20081010
  Serious: Yes (Hospitalization)
  Sender: FDA-Public Use
  Company Number: 254706

PATIENT
  Age: 71 Year

DRUGS (12)
  1. AVASTIN [Suspect]
     Indication: BRAIN OEDEMA
     Dosage: 5 MG/KG, Q2W, INTRAVENOUS
     Route: 042
     Dates: start: 20071101
  2. AVASTIN [Suspect]
     Indication: RADIATION NECROSIS
     Dosage: 5 MG/KG, Q2W, INTRAVENOUS
     Route: 042
     Dates: start: 20071101
  3. DECADRON [Concomitant]
  4. THALIDOMIDE [Concomitant]
  5. KEPPRA [Concomitant]
  6. LAMICTAL [Concomitant]
  7. SYNTHROID [Concomitant]
  8. PEPCID [Concomitant]
  9. PROZAC [Concomitant]
  10. VITAMIN E [Concomitant]
  11. VITAMIN D (CHOLECALCIFEROL) [Concomitant]
  12. CALCIUM (CALCIUM NOS) [Concomitant]

REACTIONS (1)
  - VENOUS THROMBOSIS [None]
